FAERS Safety Report 16557296 (Version 3)
Quarter: 2019Q3

REPORT INFORMATION
  Report Type: Spontaneous
  Country: JP (occurrence: JP)
  Receive Date: 20190711
  Receipt Date: 20190827
  Transmission Date: 20191004
  Serious: Yes (Life-Threatening, Hospitalization, Other)
  Sender: FDA-Public Use
  Company Number: JP-PFIZER INC-2019286080

PATIENT
  Age: 77 Year
  Sex: Female
  Weight: 53.9 kg

DRUGS (2)
  1. CORTRIL [Suspect]
     Active Substance: HYDROCORTISONE
     Indication: ADRENAL INSUFFICIENCY
     Dosage: UNK
     Route: 048
     Dates: start: 200601
  2. SUTENT [Suspect]
     Active Substance: SUNITINIB MALATE
     Indication: RENAL CELL CARCINOMA
     Dosage: UNK
     Route: 048
     Dates: start: 20190611, end: 20190615

REACTIONS (6)
  - Leukoencephalopathy [Recovered/Resolved]
  - Altered state of consciousness [Recovered/Resolved]
  - Intentional dose omission [Unknown]
  - Treatment noncompliance [Unknown]
  - Adrenocortical insufficiency acute [Recovered/Resolved]
  - Road traffic accident [Unknown]

NARRATIVE: CASE EVENT DATE: 20190613
